FAERS Safety Report 4732634-9 (Version None)
Quarter: 2005Q3

REPORT INFORMATION
  Report Type: 
  Country: None (occurrence: None)
  Receive Date: 20050803
  Receipt Date: 20050720
  Transmission Date: 20060218
  Serious: Yes (Other)
  Sender: FDA-Public Use
  Company Number: 200516022US

PATIENT
  Age: 60 Year
  Sex: Female

DRUGS (4)
  1. LANTUS [Suspect]
     Indication: DIABETES MELLITUS NON-INSULIN-DEPENDENT
     Dosage: DOSE UNIT: UNITS
     Route: 051
     Dates: start: 20050718
  2. OPTICLIK (INSULIN INJECTION PEN) [Suspect]
     Dates: start: 20050718
  3. HUMALOG [Concomitant]
     Dosage: DOSE: UNKNOWN
  4. LIPITOR [Concomitant]
     Dosage: DOSE: UNKNOWN

REACTIONS (4)
  - BLOOD GLUCOSE INCREASED [None]
  - PHARMACEUTICAL PRODUCT COMPLAINT [None]
  - VISUAL DISTURBANCE [None]
  - WRONG TECHNIQUE IN DRUG USAGE PROCESS [None]
